FAERS Safety Report 5447521-0 (Version None)
Quarter: 2007Q3

REPORT INFORMATION
  Report Type: 
  Country: None (occurrence: None)
  Receive Date: 20070905
  Receipt Date: 20070905
  Transmission Date: 20080115
  Serious: Yes (Other)
  Sender: FDA-Public Use
  Company Number: None

PATIENT
  Age: 37 Year
  Sex: Male
  Weight: 83.9154 kg

DRUGS (1)
  1. CREST W/ FLUORIDE [Suspect]
     Indication: GINGIVAL DISORDER
     Dosage: MOUTHFUL DAILY PO
     Route: 048
     Dates: start: 20070601, end: 20070904

REACTIONS (1)
  - TOOTH DISCOLOURATION [None]
